FAERS Safety Report 16177632 (Version 1)
Quarter: 2019Q2

REPORT INFORMATION
  Report Type: Spontaneous
  Country: GB (occurrence: GB)
  Receive Date: 20190410
  Receipt Date: 20190410
  Transmission Date: 20190711
  Serious: Yes (Other)
  Sender: FDA-Public Use
  Company Number: GB-AUROBINDO-AUR-APL-2019-019038

PATIENT

DRUGS (1)
  1. QUETIAPINE. [Suspect]
     Active Substance: QUETIAPINE
     Indication: BIPOLAR DISORDER
     Dosage: UNK
     Route: 048

REACTIONS (6)
  - Emotional poverty [Unknown]
  - Confusional state [Unknown]
  - Psychotic behaviour [Unknown]
  - Impulsive behaviour [Recovered/Resolved]
  - Anger [Unknown]
  - Amnesia [Unknown]
